FAERS Safety Report 13239433 (Version 1)
Quarter: 2017Q1

REPORT INFORMATION
  Report Type: Spontaneous
  Country: US (occurrence: US)
  Receive Date: 20170216
  Receipt Date: 20170216
  Transmission Date: 20170428
  Serious: No
  Sender: FDA-Public Use
  Company Number: US-ELI_LILLY_AND_COMPANY-US201702003561

PATIENT
  Age: 53 Year
  Sex: Female

DRUGS (4)
  1. MELOXICAM. [Concomitant]
     Active Substance: MELOXICAM
     Indication: PRODUCT USED FOR UNKNOWN INDICATION
     Dosage: UNK, UNKNOWN
     Route: 065
  2. DULOXETINE HYDROCHLORIDE. [Suspect]
     Active Substance: DULOXETINE HYDROCHLORIDE
     Indication: FIBROMYALGIA
     Dosage: 60 MG, QD
     Route: 065
     Dates: start: 2015
  3. DULOXETINE HYDROCHLORIDE. [Suspect]
     Active Substance: DULOXETINE HYDROCHLORIDE
     Indication: DEPRESSION
     Dosage: 30 MG, QD
     Route: 065
     Dates: start: 20170126, end: 201702
  4. GABAPENTIN. [Concomitant]
     Active Substance: GABAPENTIN
     Indication: PRODUCT USED FOR UNKNOWN INDICATION
     Dosage: UNK, UNKNOWN
     Route: 065

REACTIONS (32)
  - Aphasia [Unknown]
  - Psychomotor skills impaired [Unknown]
  - Hyperphagia [Unknown]
  - Paraesthesia [Unknown]
  - Nausea [Unknown]
  - Skin wound [Unknown]
  - Muscle injury [Unknown]
  - Nasal dryness [Unknown]
  - Memory impairment [Unknown]
  - Muscular weakness [Unknown]
  - Rhinorrhoea [Unknown]
  - Paraesthesia [Unknown]
  - Onychoclasis [Unknown]
  - Mood swings [Unknown]
  - Arthralgia [Unknown]
  - Dry throat [Unknown]
  - Tremor [Unknown]
  - Oral pain [Unknown]
  - Hypoaesthesia [Unknown]
  - Anxiety [Unknown]
  - Dyspnoea [Unknown]
  - Dry eye [Unknown]
  - Abdominal pain upper [Unknown]
  - Lacrimation increased [Unknown]
  - Dyspnoea [Unknown]
  - Mood swings [Unknown]
  - Withdrawal syndrome [Unknown]
  - Wound [Not Recovered/Not Resolved]
  - Gastrooesophageal reflux disease [Unknown]
  - Nail disorder [Unknown]
  - Yellow skin [Unknown]
  - Pain in extremity [Unknown]

NARRATIVE: CASE EVENT DATE: 20170126
